FAERS Safety Report 11932205 (Version 2)
Quarter: 2016Q1

REPORT INFORMATION
  Report Type: Spontaneous
  Country: US (occurrence: US)
  Receive Date: 20160120
  Receipt Date: 20160130
  Transmission Date: 20160526
  Serious: No
  Sender: FDA-Public Use
  Company Number: US-SHIRE-US201600592

PATIENT
  Age: 9 Year
  Sex: Male
  Weight: 49.89 kg

DRUGS (3)
  1. SERTRALINE [Concomitant]
     Active Substance: SERTRALINE HYDROCHLORIDE
     Indication: FRUSTRATION TOLERANCE DECREASED
     Dosage: 25 MG, 1X/DAY:QD
     Route: 048
     Dates: start: 2012
  2. SERTRALINE [Concomitant]
     Active Substance: SERTRALINE HYDROCHLORIDE
     Indication: EMOTIONAL DISORDER
  3. VYVANSE [Suspect]
     Active Substance: LISDEXAMFETAMINE DIMESYLATE
     Indication: ATTENTION DEFICIT/HYPERACTIVITY DISORDER
     Dosage: 60 MG, 1X/DAY:QD
     Route: 048
     Dates: start: 201504

REACTIONS (4)
  - Adverse event [Unknown]
  - Disturbance in social behaviour [Recovered/Resolved]
  - Disturbance in attention [Recovered/Resolved]
  - Product quality issue [Unknown]

NARRATIVE: CASE EVENT DATE: 201507
